FAERS Safety Report 4985611-7 (Version None)
Quarter: 2006Q2

REPORT INFORMATION
  Report Type: 
  Country: None (occurrence: None)
  Receive Date: 20060426
  Receipt Date: 20060426
  Transmission Date: 20061013
  Serious: Yes (Other)
  Sender: FDA-Public Use
  Company Number: None

PATIENT
  Sex: Male
  Weight: 79 kg

DRUGS (2)
  1. GEMCITABINE [Suspect]
     Indication: HODGKIN'S DISEASE
     Dosage: 153 MG
     Dates: start: 20060331, end: 20060331
  2. VINBLASTINE SULFATE [Suspect]
     Dosage: 12 MG
     Dates: start: 20060331, end: 20060331

REACTIONS (2)
  - NEUTROPHIL COUNT DECREASED [None]
  - WHITE BLOOD CELL COUNT DECREASED [None]
